FAERS Safety Report 17874136 (Version 2)
Quarter: 2020Q2

REPORT INFORMATION
  Report Type: Report from Study
  Country: None (occurrence: ES)
  Receive Date: 20200609
  Receipt Date: 20200613
  Transmission Date: 20200714
  Serious: Yes (Hospitalization, Other)
  Sender: FDA-Public Use
  Company Number: ES-ABBVIE-20K-144-3432386-00

PATIENT
  Age: 72 Year
  Sex: Female
  Weight: 52 kg

DRUGS (1)
  1. DUODOPA [Suspect]
     Active Substance: CARBIDOPA\LEVODOPA
     Indication: PARKINSON^S DISEASE
     Route: 050
     Dates: start: 20190117

REACTIONS (7)
  - Musculoskeletal stiffness [Unknown]
  - Salivary hypersecretion [Recovered/Resolved]
  - Hip fracture [Recovering/Resolving]
  - Depression [Not Recovered/Not Resolved]
  - Freezing phenomenon [Unknown]
  - Trismus [Unknown]
  - Fall [Not Recovered/Not Resolved]

NARRATIVE: CASE EVENT DATE: 2020
